FAERS Safety Report 10304421 (Version 2)
Quarter: 2014Q3

REPORT INFORMATION
  Report Type: Spontaneous
  Country: ES (occurrence: ES)
  Receive Date: 20140715
  Receipt Date: 20140716
  Transmission Date: 20150326
  Serious: Yes (Other)
  Sender: FDA-Public Use
  Company Number: ES-ROCHE-1433137

PATIENT
  Age: 71 Year
  Sex: Female

DRUGS (2)
  1. BONVIVA [Suspect]
     Active Substance: IBANDRONATE SODIUM
     Indication: OSTEOPOROSIS
     Route: 065
     Dates: end: 201405
  2. GELOCATIL [Concomitant]
     Indication: PAIN

REACTIONS (3)
  - Tooth infection [Not Recovered/Not Resolved]
  - Scar [Not Recovered/Not Resolved]
  - Toothache [Not Recovered/Not Resolved]
